FAERS Safety Report 11647560 (Version 1)
Quarter: 2015Q4

REPORT INFORMATION
  Report Type: Spontaneous
  Country: US (occurrence: None)
  Receive Date: 20151019
  Receipt Date: 20151019
  Transmission Date: 20160304
  Serious: Yes (Hospitalization)
  Sender: FDA-Public Use
  Company Number: None

PATIENT
  Age: 53 Year
  Sex: Female
  Weight: 71.1 kg

DRUGS (1)
  1. CISPLATIN. [Suspect]
     Active Substance: CISPLATIN
     Dates: end: 20150930

REACTIONS (12)
  - Diarrhoea [None]
  - Decreased appetite [None]
  - Chest pain [None]
  - Palpitations [None]
  - Dizziness [None]
  - Cough [None]
  - Fatigue [None]
  - Asthenia [None]
  - Flushing [None]
  - Pyrexia [None]
  - Chills [None]
  - Vaginal haemorrhage [None]

NARRATIVE: CASE EVENT DATE: 20151007
